FAERS Safety Report 8590551-0 (Version None)
Quarter: 2012Q3

REPORT INFORMATION
  Report Type: 
  Country: None (occurrence: None)
  Receive Date: 20120813
  Receipt Date: 20120802
  Transmission Date: 20120928
  Serious: Yes (Hospitalization)
  Sender: FDA-Public Use
  Company Number: JP-ROCHE-1069397

PATIENT
  Sex: Female
  Weight: 38 kg

DRUGS (5)
  1. VITAMIN E [Suspect]
     Indication: PERIPHERAL CIRCULATORY FAILURE
     Route: 048
     Dates: start: 20110112
  2. ACTEMRA [Suspect]
     Route: 058
     Dates: start: 20100618
  3. PLACEBO [Suspect]
     Indication: RHEUMATOID ARTHRITIS
     Route: 042
     Dates: start: 20100618
  4. ACTEMRA [Suspect]
     Indication: RHEUMATOID ARTHRITIS
     Route: 058
     Dates: start: 20101203, end: 20120502
  5. ACTEMRA [Suspect]
     Route: 058
     Dates: start: 20100618

REACTIONS (1)
  - INTERSTITIAL LUNG DISEASE [None]
